FAERS Safety Report 13341540 (Version 1)
Quarter: 2017Q1

REPORT INFORMATION
  Report Type: Spontaneous
  Country: US (occurrence: US)
  Receive Date: 20170316
  Receipt Date: 20170316
  Transmission Date: 20170428
  Serious: No
  Sender: FDA-Public Use
  Company Number: US-ROCHE-1761108

PATIENT
  Sex: Female

DRUGS (5)
  1. ALLEGRA ALLERGY [Concomitant]
     Active Substance: FEXOFENADINE HYDROCHLORIDE
  2. IBUPROFEN. [Concomitant]
     Active Substance: IBUPROFEN
  3. LATANOPROST. [Concomitant]
     Active Substance: LATANOPROST
  4. DRISDOL [Concomitant]
     Active Substance: ERGOCALCIFEROL
  5. ERIVEDGE [Suspect]
     Active Substance: VISMODEGIB
     Indication: BASAL CELL CARCINOMA
     Route: 048
     Dates: start: 20160504

REACTIONS (5)
  - Fatigue [Unknown]
  - Diarrhoea [Unknown]
  - Ageusia [Unknown]
  - Muscle spasms [Unknown]
  - Arthralgia [Unknown]
